FAERS Safety Report 9058431 (Version 1)
Quarter: 2013Q1

REPORT INFORMATION
  Report Type: Spontaneous
  Country: SE (occurrence: SE)
  Receive Date: 20130211
  Receipt Date: 20130211
  Transmission Date: 20140127
  Serious: Yes (Hospitalization)
  Sender: FDA-Public Use
  Company Number: SE-ELI_LILLY_AND_COMPANY-SE201302000523

PATIENT
  Age: 49 None
  Sex: Male

DRUGS (3)
  1. ZYPREXA [Suspect]
     Dosage: 2.5 MG, UNK
  2. CISORDINOL                              /DEN/ [Concomitant]
     Dosage: 2 MG, UNK
  3. VOLTAREN                                /SCH/ [Concomitant]

REACTIONS (4)
  - Panic attack [Not Recovered/Not Resolved]
  - Psychotic disorder [Not Recovered/Not Resolved]
  - Depressed mood [Not Recovered/Not Resolved]
  - Ejaculation failure [Not Recovered/Not Resolved]
